FAERS Safety Report 10297999 (Version 1)
Quarter: 2014Q3

REPORT INFORMATION
  Report Type: Spontaneous
  Country: US (occurrence: US)
  Receive Date: 20140711
  Receipt Date: 20140711
  Transmission Date: 20150326
  Serious: No
  Sender: FDA-Public Use
  Company Number: US-GLAXOSMITHKLINE-A1026649A

PATIENT
  Sex: Male

DRUGS (8)
  1. DEPAKOTE [Concomitant]
     Active Substance: DIVALPROEX SODIUM
  2. FAMOTIDINE. [Concomitant]
     Active Substance: FAMOTIDINE
  3. BACLOFEN. [Concomitant]
     Active Substance: BACLOFEN
  4. METOPROLOL [Concomitant]
     Active Substance: METOPROLOL
  5. FLOVENT [Suspect]
     Active Substance: FLUTICASONE PROPIONATE
     Indication: PRODUCT USED FOR UNKNOWN INDICATION
     Dosage: 2PUFF TWICE PER DAY
     Route: 055
     Dates: start: 2010
  6. SIMVASTATIN. [Concomitant]
     Active Substance: SIMVASTATIN
  7. PAXIL [Concomitant]
     Active Substance: PAROXETINE HYDROCHLORIDE
  8. TRAMADOL [Concomitant]
     Active Substance: TRAMADOL

REACTIONS (2)
  - Fatigue [Unknown]
  - Blood testosterone decreased [Not Recovered/Not Resolved]
